FAERS Safety Report 11782852 (Version 3)
Quarter: 2015Q4

REPORT INFORMATION
  Report Type: Spontaneous
  Country: IT (occurrence: IT)
  Receive Date: 20151127
  Receipt Date: 20151230
  Transmission Date: 20160305
  Serious: Yes (Other)
  Sender: FDA-Public Use
  Company Number: IT-JNJFOC-20151124109

PATIENT
  Age: 57 Year
  Sex: Female

DRUGS (6)
  1. HEPARIN [Suspect]
     Active Substance: HEPARIN SODIUM
     Indication: PRODUCT USED FOR UNKNOWN INDICATION
     Dosage: SINGLE
     Route: 042
     Dates: start: 20151119
  2. EFIENT [Suspect]
     Active Substance: PRASUGREL HYDROCHLORIDE
     Indication: ACUTE CORONARY SYNDROME
     Route: 065
     Dates: start: 20151119
  3. HEPARIN [Suspect]
     Active Substance: HEPARIN SODIUM
     Indication: PERCUTANEOUS CORONARY INTERVENTION
     Dosage: SINGLE
     Route: 042
     Dates: start: 20151119
  4. REOPRO [Suspect]
     Active Substance: ABCIXIMAB
     Indication: ACUTE CORONARY SYNDROME
     Route: 065
     Dates: start: 20151119
  5. REOPRO [Suspect]
     Active Substance: ABCIXIMAB
     Indication: PERCUTANEOUS CORONARY INTERVENTION
     Route: 065
     Dates: start: 20151119
  6. EFIENT [Suspect]
     Active Substance: PRASUGREL HYDROCHLORIDE
     Indication: PERCUTANEOUS CORONARY INTERVENTION
     Route: 065
     Dates: start: 20151119

REACTIONS (4)
  - Fall [Unknown]
  - Syncope [Unknown]
  - Thrombocytopenia [Recovering/Resolving]
  - Facial bones fracture [Unknown]

NARRATIVE: CASE EVENT DATE: 20151121
